FAERS Safety Report 22397143 (Version 16)
Quarter: 2024Q3

REPORT INFORMATION
  Report Type: Report from Study
  Country: CO (occurrence: CO)
  Receive Date: 20230602
  Receipt Date: 20240725
  Transmission Date: 20241016
  Serious: Yes (Life-Threatening, Hospitalization, Other)
  Sender: IPSEN
  Company Number: CO-IPSEN Group, Research and Development-2023-12985

PATIENT
  Age: 73 Year
  Sex: Female
  Weight: 54 kg

DRUGS (17)
  1. LANREOTIDE ACETATE [Suspect]
     Active Substance: LANREOTIDE ACETATE
     Indication: Acromegaly
     Dosage: 60 MG, EVERY 28 DAYS
     Route: 058
     Dates: start: 20230421, end: 20230814
  2. LANREOTIDE ACETATE [Suspect]
     Active Substance: LANREOTIDE ACETATE
     Dosage: 90 MG, EVERY 28 DAYS
     Route: 058
     Dates: start: 2023
  3. VALSARTAN [Concomitant]
     Active Substance: VALSARTAN
     Indication: Hypertension
     Dosage: 60 MG, DAILY, 1 TABLET EACH DAY
     Route: 048
  4. VALSARTAN [Concomitant]
     Active Substance: VALSARTAN
     Dosage: 160 MG, DAILY, 1 TABLET EVERY 24 HOURS
     Route: 048
     Dates: start: 202210
  5. METOPROLOL [Concomitant]
     Active Substance: METOPROLOL
     Indication: Hypertension
     Dosage: 1 TABLET EACH DAY
     Route: 048
  6. METOPROLOL [Concomitant]
     Active Substance: METOPROLOL
     Indication: Arrhythmia
     Dosage: 1 TABLET EVERY 12 HOURS
     Route: 048
     Dates: start: 202210
  7. EMPAGLIFLOZIN [Concomitant]
     Active Substance: EMPAGLIFLOZIN
     Indication: Diabetes mellitus
     Dosage: 1 MONTH AND A HALF THAT YOU STOPPED THE MEDICATION?1 TABLET EVERY 24 HOURS
     Route: 048
  8. ASPIRIN [Concomitant]
     Active Substance: ASPIRIN
     Indication: Blood pressure abnormal
     Route: 048
  9. ASPIRIN [Concomitant]
     Active Substance: ASPIRIN
     Indication: Peripheral vascular disorder
     Dosage: 1 TABLET EVERY OTHER DAY
     Route: 048
     Dates: start: 2008
  10. ATORVASTATIN [Concomitant]
     Active Substance: ATORVASTATIN
     Indication: Blood cholesterol
     Dosage: 1 TABLET EVERY 24 HOURS
     Route: 048
  11. ATORVASTATIN [Concomitant]
     Active Substance: ATORVASTATIN
     Indication: Blood triglycerides
     Route: 048
     Dates: start: 202403
  12. PREGABALIN [Concomitant]
     Active Substance: PREGABALIN
     Indication: Fibromyalgia
     Dosage: 1 TABLET EVERY 24 HOURS
     Route: 048
     Dates: start: 202307
  13. PREGABALIN [Concomitant]
     Active Substance: PREGABALIN
     Indication: Pain management
     Dosage: 1 TABLET EVERY 24 HOURS
     Route: 048
     Dates: start: 202402
  14. ZEROCOLER [Concomitant]
     Indication: Blood cholesterol
     Dosage: 1 TABLET AT NIGHT
     Route: 048
     Dates: start: 202403
  15. ZEROCOLER [Concomitant]
     Indication: Blood triglycerides
  16. LINAGLIPTIN [Concomitant]
     Active Substance: LINAGLIPTIN
     Indication: Diabetes mellitus
     Dosage: 1 TABLET DAILY
     Route: 048
     Dates: end: 2023
  17. LINAGLIPTIN [Concomitant]
     Active Substance: LINAGLIPTIN
     Dosage: 1 TABLET DAILY
     Route: 048
     Dates: start: 2023

REACTIONS (35)
  - Cerebrovascular accident [Not Recovered/Not Resolved]
  - Angina pectoris [Not Recovered/Not Resolved]
  - Gastritis [Recovered/Resolved]
  - Blood sodium decreased [Recovered/Resolved]
  - Fall [Recovering/Resolving]
  - Balance disorder [Recovering/Resolving]
  - Hip fracture [Not Recovered/Not Resolved]
  - Viral infection [Not Recovered/Not Resolved]
  - Blood potassium decreased [Not Recovered/Not Resolved]
  - Nasopharyngitis [Unknown]
  - Body height decreased [Not Recovered/Not Resolved]
  - Fibromyalgia [Not Recovered/Not Resolved]
  - Arthralgia [Not Recovered/Not Resolved]
  - Migraine [Not Recovered/Not Resolved]
  - Laryngitis [Not Recovered/Not Resolved]
  - Fall [Not Recovered/Not Resolved]
  - Pain in jaw [Not Recovered/Not Resolved]
  - Toothache [Not Recovered/Not Resolved]
  - Rhinalgia [Not Recovered/Not Resolved]
  - Herpes virus infection [Not Recovered/Not Resolved]
  - Discomfort [Not Recovered/Not Resolved]
  - Blood glucose increased [Not Recovered/Not Resolved]
  - Headache [Not Recovered/Not Resolved]
  - Dry mouth [Not Recovered/Not Resolved]
  - Depression [Not Recovered/Not Resolved]
  - Fear [Not Recovered/Not Resolved]
  - Gastrointestinal disorder [Not Recovered/Not Resolved]
  - Hypertension [Not Recovered/Not Resolved]
  - Burning sensation [Not Recovered/Not Resolved]
  - Abdominal pain upper [Not Recovered/Not Resolved]
  - Flatulence [Not Recovered/Not Resolved]
  - Insomnia [Not Recovered/Not Resolved]
  - Product dose omission issue [Unknown]
  - Lack of application site rotation [Unknown]
  - Product supply issue [Unknown]

NARRATIVE: CASE EVENT DATE: 20230511
